FAERS Safety Report 17063234 (Version 1)
Quarter: 2019Q4

REPORT INFORMATION
  Report Type: Spontaneous
  Country: GB (occurrence: GB)
  Receive Date: 20191122
  Receipt Date: 20191122
  Transmission Date: 20200122
  Serious: Yes (Other)
  Sender: FDA-Public Use
  Company Number: GB-ACCORD-161446

PATIENT
  Age: 40 Year
  Sex: Female

DRUGS (4)
  1. CITALOPRAM [Concomitant]
     Active Substance: CITALOPRAM HYDROBROMIDE
  2. SERTRALINE [Suspect]
     Active Substance: SERTRALINE HYDROCHLORIDE
     Indication: ANXIETY
     Dosage: 50
     Route: 048
     Dates: start: 201706
  3. IRON [Concomitant]
     Active Substance: IRON
  4. SERTRALINE [Suspect]
     Active Substance: SERTRALINE HYDROCHLORIDE
     Indication: ANXIETY
     Dosage: 100
     Route: 048
     Dates: end: 201810

REACTIONS (9)
  - Depression [Recovered/Resolved]
  - Disturbance in attention [Recovering/Resolving]
  - Anxiety [Recovering/Resolving]
  - Mood swings [Recovering/Resolving]
  - Maternal exposure during pregnancy [Unknown]
  - Dizziness [Recovered/Resolved]
  - Nausea [Recovered/Resolved]
  - Feeling abnormal [Recovering/Resolving]
  - Frustration tolerance decreased [Recovering/Resolving]

NARRATIVE: CASE EVENT DATE: 201803
